FAERS Safety Report 9379943 (Version 2)
Quarter: 2013Q4

REPORT INFORMATION
  Report Type: Report from Study
  Country: AR (occurrence: AR)
  Receive Date: 20130702
  Receipt Date: 20131016
  Transmission Date: 20140711
  Serious: Yes (Death, Hospitalization, Other)
  Sender: FDA-Public Use
  Company Number: PHHY2013AR068733

PATIENT
  Age: 78 Year
  Sex: Male

DRUGS (3)
  1. DIOVAN [Suspect]
     Indication: HYPERTENSION
     Dosage: 320 MG, DAILY
     Route: 048
  2. DEXAMED//DEXAMETHASONE SODIUM PHOSPHATE [Concomitant]
     Dosage: UNK UKN, UNK
  3. TERLOC [Concomitant]
     Dosage: UNK UKN, UNK

REACTIONS (6)
  - Brain neoplasm [Fatal]
  - Balance disorder [Fatal]
  - Lung neoplasm [Fatal]
  - Retching [Recovering/Resolving]
  - Listless [Recovering/Resolving]
  - Fatigue [Not Recovered/Not Resolved]
